FAERS Safety Report 8558576-9 (Version None)
Quarter: 2012Q3

REPORT INFORMATION
  Report Type: 
  Country: None (occurrence: None)
  Receive Date: 20120801
  Receipt Date: 20120725
  Transmission Date: 20120928
  Serious: Yes (Hospitalization)
  Sender: FDA-Public Use
  Company Number: CA-UCBSA-062652

PATIENT
  Age: 59 Year
  Sex: Female

DRUGS (11)
  1. CIMZIA [Suspect]
     Indication: RHEUMATOID ARTHRITIS
     Route: 058
     Dates: start: 20091219, end: 20120601
  2. NEXIUM [Concomitant]
  3. NORVASC [Concomitant]
  4. METHOTREXATE [Concomitant]
  5. DIOVAN [Concomitant]
  6. HYDROCHLOROTHIAZIDE [Concomitant]
  7. PAXIL [Concomitant]
  8. METOPROLOL TARTRATE [Concomitant]
  9. OXYCONTIN [Concomitant]
  10. PREDNISONE [Concomitant]
  11. LEVOCARB [Concomitant]

REACTIONS (1)
  - ARTHRITIS INFECTIVE [None]
